FAERS Safety Report 11292022 (Version 1)
Quarter: 2015Q3

REPORT INFORMATION
  Report Type: Spontaneous
  Country: US (occurrence: None)
  Receive Date: 20150721
  Receipt Date: 20150721
  Transmission Date: 20151125
  Serious: Yes (Life-Threatening)
  Sender: FDA-Public Use
  Company Number: None

PATIENT
  Age: 65 Year
  Sex: Male

DRUGS (1)
  1. LOSARTAN. [Suspect]
     Active Substance: LOSARTAN
     Indication: HYPERTENSION
     Route: 048
     Dates: start: 20120518, end: 20120526

REACTIONS (4)
  - Rash [None]
  - Urticaria [None]
  - Dyspnoea [None]
  - Terminal insomnia [None]

NARRATIVE: CASE EVENT DATE: 20120526
